FAERS Safety Report 5531680-5 (Version None)
Quarter: 2007Q4

REPORT INFORMATION
  Report Type: 
  Country: None (occurrence: None)
  Receive Date: 20071128
  Receipt Date: 20071128
  Transmission Date: 20080405
  Serious: No
  Sender: FDA-Public Use
  Company Number: None

PATIENT
  Sex: Female
  Weight: 58.9676 kg

DRUGS (2)
  1. BACTRIM [Suspect]
     Indication: INFECTION
     Dosage: 1 12 HRS.
     Dates: start: 20070628
  2. BACTRIM [Suspect]
     Indication: INFECTION
     Dosage: 1 12 HRS.
     Dates: start: 20071103

REACTIONS (3)
  - CHEST PAIN [None]
  - CHILLS [None]
  - NAUSEA [None]
